FAERS Safety Report 11787408 (Version 4)
Quarter: 2016Q1

REPORT INFORMATION
  Report Type: Spontaneous
  Country: FR (occurrence: FR)
  Receive Date: 20151130
  Receipt Date: 20160219
  Transmission Date: 20160525
  Serious: Yes (Other)
  Sender: FDA-Public Use
  Company Number: CHPA2015FR013877

PATIENT
  Age: 60 Year
  Sex: Female

DRUGS (2)
  1. VOLTACARE THERMAL PATCH [Suspect]
     Active Substance: DICLOFENAC
     Indication: BACK PAIN
     Dosage: UNK
     Route: 003
     Dates: start: 201511
  2. DICLOFENAC [Suspect]
     Active Substance: DICLOFENAC
     Indication: BACK PAIN
     Dosage: UNK
     Route: 061

REACTIONS (6)
  - Scar [Not Recovered/Not Resolved]
  - Pain [Unknown]
  - Skin exfoliation [Unknown]
  - Skin tightness [Unknown]
  - Pruritus [Unknown]
  - Burns third degree [Recovering/Resolving]

NARRATIVE: CASE EVENT DATE: 201511
